FAERS Safety Report 6802178-9 (Version None)
Quarter: 2010Q2

REPORT INFORMATION
  Report Type: 
  Country: None (occurrence: None)
  Receive Date: 20100629
  Receipt Date: 20080308
  Transmission Date: 20101027
  Serious: Yes (Other)
  Sender: FDA-Public Use
  Company Number: US-PFIZER INC-2006009989

PATIENT
  Sex: Male
  Weight: 73.48 kg

DRUGS (8)
  1. TIKOSYN [Suspect]
     Indication: ATRIAL FIBRILLATION
     Route: 048
     Dates: start: 20051206
  2. ALCOHOL [Interacting]
     Route: 048
     Dates: start: 20060108, end: 20060108
  3. POTASSIUM [Concomitant]
     Route: 065
  4. MAGNESIUM [Concomitant]
     Route: 065
  5. WARFARIN [Concomitant]
     Route: 048
  6. VITAMINS [Concomitant]
     Route: 065
  7. CLINDAMYCIN [Concomitant]
     Route: 065
  8. VIAGRA [Concomitant]
     Route: 065

REACTIONS (7)
  - ALCOHOL INTERACTION [None]
  - COUGH [None]
  - ELECTROCARDIOGRAM QT PROLONGED [None]
  - HEART RATE INCREASED [None]
  - LUNG INFECTION [None]
  - MEDICATION ERROR [None]
  - VISION BLURRED [None]
